FAERS Safety Report 12500006 (Version 3)
Quarter: 2016Q4

REPORT INFORMATION
  Report Type: Spontaneous
  Country: US (occurrence: US)
  Receive Date: 20160627
  Receipt Date: 20161028
  Transmission Date: 20170207
  Serious: No
  Sender: FDA-Public Use
  Company Number: US-GLAXOSMITHKLINE-US2016083753

PATIENT
  Age: 55 Year
  Sex: Female
  Weight: 47.17 kg

DRUGS (1)
  1. BENLYSTA [Suspect]
     Active Substance: BELIMUMAB
     Indication: SYSTEMIC LUPUS ERYTHEMATOSUS
     Dosage: 400 MG, CYC
     Route: 042
     Dates: start: 20150331

REACTIONS (6)
  - Dysuria [Unknown]
  - Dysuria [Unknown]
  - Blood urine present [Unknown]
  - Tenderness [Unknown]
  - Urethritis noninfective [Unknown]
  - Bacterial vaginosis [Recovered/Resolved]

NARRATIVE: CASE EVENT DATE: 201604
